FAERS Safety Report 23992355 (Version 1)
Quarter: 2024Q2

REPORT INFORMATION
  Report Type: Spontaneous
  Country: EU (occurrence: EU)
  Receive Date: 20240620
  Receipt Date: 20240620
  Transmission Date: 20240716
  Serious: Yes (Other)
  Sender: FDA-Public Use
  Company Number: None

PATIENT
  Age: 75 Year
  Sex: Male
  Weight: 67 kg

DRUGS (1)
  1. FIBRYGA [Suspect]
     Active Substance: FIBRINOGEN HUMAN
     Indication: Haemorrhage
     Route: 042
     Dates: start: 20240523, end: 20240523

REACTIONS (1)
  - Hypotension [Recovered/Resolved]

NARRATIVE: CASE EVENT DATE: 20240523
